FAERS Safety Report 8799883 (Version 2)
Quarter: 2013Q1

REPORT INFORMATION
  Report Type: Spontaneous
  Country: US (occurrence: US)
  Receive Date: 20120919
  Receipt Date: 20130111
  Transmission Date: 20140127
  Serious: No
  Sender: FDA-Public Use
  Company Number: US-009507513-1209USA004404

PATIENT
  Age: 20 Year
  Sex: Female

DRUGS (2)
  1. NEXPLANON [Suspect]
     Indication: CONTRACEPTION
     Dosage: UNK
     Route: 059
     Dates: start: 20120730, end: 20120907
  2. TAZORAC [Concomitant]
     Indication: ACNE
     Dosage: UNK

REACTIONS (3)
  - Implant site erythema [Unknown]
  - Implant site swelling [Unknown]
  - Implant site discharge [Unknown]
